FAERS Safety Report 5205808-0 (Version None)
Quarter: 2007Q1

REPORT INFORMATION
  Report Type: 
  Country: None (occurrence: None)
  Receive Date: 20070108
  Receipt Date: 20070108
  Transmission Date: 20070707
  Serious: No
  Sender: FDA-Public Use
  Company Number: None

PATIENT
  Sex: Female
  Weight: 74.8435 kg

DRUGS (1)
  1. NAPROXEN SODIUM [Suspect]
     Indication: COSTOCHONDRITIS
     Dosage: 500 MG 2 TIMES DAILY PO
     Route: 048
     Dates: start: 19960615, end: 19960625

REACTIONS (4)
  - ABDOMINAL PAIN UPPER [None]
  - BACK PAIN [None]
  - DYSPEPSIA [None]
  - INSOMNIA [None]
